FAERS Safety Report 12113533 (Version 5)
Quarter: 2016Q2

REPORT INFORMATION
  Report Type: Report from Study
  Country: US (occurrence: US)
  Receive Date: 20160225
  Receipt Date: 20160609
  Transmission Date: 20160815
  Serious: Yes (Other)
  Sender: FDA-Public Use
  Company Number: US-AMGEN-USASL2016020005

PATIENT
  Age: 40 Year
  Sex: Male

DRUGS (3)
  1. ENBREL [Suspect]
     Active Substance: ETANERCEPT
     Indication: OSTEOARTHRITIS
  2. METHOTREXATE [Concomitant]
     Active Substance: METHOTREXATE
     Dosage: UNK
  3. ENBREL [Suspect]
     Active Substance: ETANERCEPT
     Indication: PSORIATIC ARTHROPATHY
     Dosage: 50 MG, QWK
     Route: 065
     Dates: start: 20160225

REACTIONS (20)
  - Groin pain [Recovered/Resolved]
  - Condition aggravated [Unknown]
  - Elbow operation [Unknown]
  - Arthralgia [Unknown]
  - Skin disorder [Unknown]
  - Gastroenteritis viral [Unknown]
  - Toe operation [Unknown]
  - Anxiety [Unknown]
  - Testicular operation [Unknown]
  - Ear disorder [Unknown]
  - Influenza like illness [Recovered/Resolved]
  - Intervertebral disc protrusion [Unknown]
  - Limb operation [Unknown]
  - Photophobia [Unknown]
  - Pain [Unknown]
  - Exostosis [Unknown]
  - Muscle strain [Unknown]
  - Fibromyalgia [Unknown]
  - Testicular pain [Not Recovered/Not Resolved]
  - Spinal column stenosis [Unknown]

NARRATIVE: CASE EVENT DATE: 2016
